FAERS Safety Report 7357786-6 (Version None)
Quarter: 2011Q1

REPORT INFORMATION
  Report Type: 
  Country: None (occurrence: None)
  Receive Date: 20110309
  Receipt Date: 20110223
  Transmission Date: 20110831
  Serious: Yes (Other)
  Sender: FDA-Public Use
  Company Number: 2011AP000338

PATIENT
  Age: 54 Year
  Sex: Female

DRUGS (5)
  1. LANSOPRAZOLE [Concomitant]
  2. MICONAZOLE (MICONAZOLE) [Concomitant]
  3. LACTULOSE [Concomitant]
  4. LANSOPRAZOLE [Concomitant]
  5. RANITIDINE HYDROCHLORIDE [Suspect]
     Indication: PRODUCT USED FOR UNKNOWN INDICATION
     Dates: start: 20110124

REACTIONS (1)
  - RASH PRURITIC [None]
